FAERS Safety Report 13536092 (Version 11)
Quarter: 2017Q4

REPORT INFORMATION
  Report Type: Spontaneous
  Country: US (occurrence: US)
  Receive Date: 20170511
  Receipt Date: 20171110
  Transmission Date: 20180320
  Serious: Yes (Hospitalization, Other)
  Sender: FDA-Public Use
  Company Number: US-PFIZER INC-2017199953

PATIENT
  Age: 73 Year
  Sex: Male

DRUGS (28)
  1. XELJANZ [Interacting]
     Active Substance: TOFACITINIB CITRATE
     Dosage: 5 MG, 2X/DAY
     Route: 048
     Dates: start: 20170615
  2. XTANDI [Interacting]
     Active Substance: ENZALUTAMIDE
     Dosage: 160 MG, ONCE DAILY (EVERY EVENING/ ONCE EVERY EVENING FOUR TABLETS)
     Route: 048
  3. ENBREL [Concomitant]
     Active Substance: ETANERCEPT
     Dosage: UNK
     Dates: start: 2015, end: 2015
  4. LOSARTAN. [Concomitant]
     Active Substance: LOSARTAN
     Dosage: UNK
     Dates: end: 2016
  5. VITAMIN B [Concomitant]
     Active Substance: VITAMIN B
     Dosage: UNK
     Dates: start: 2016
  6. TRIAZOLAM. [Concomitant]
     Active Substance: TRIAZOLAM
     Dosage: UNK
     Dates: end: 20170510
  7. NORCO [Concomitant]
     Active Substance: ACETAMINOPHEN\HYDROCODONE BITARTRATE
     Dosage: UNK (HYDROCODONE BITARTRATE 5MG/ PARACETAMOL 325 MG)
  8. PREDNISOLONE. [Concomitant]
     Active Substance: PREDNISOLONE
     Dosage: 5 MG, UNK
  9. XTANDI [Interacting]
     Active Substance: ENZALUTAMIDE
     Indication: PROSTATE CANCER
     Dosage: 160 MG, 1X/DAY
     Route: 048
     Dates: start: 20161222, end: 20161228
  10. LUPRON [Concomitant]
     Active Substance: LEUPROLIDE ACETATE
     Dosage: UNK
     Dates: start: 2013
  11. LASIX [Concomitant]
     Active Substance: FUROSEMIDE
     Dosage: UNK
     Dates: start: 2016
  12. VITAMIN D [Concomitant]
     Active Substance: CHOLECALCIFEROL
     Dosage: UNK
     Dates: start: 2016
  13. POTASSIUM CHLORIDE. [Concomitant]
     Active Substance: POTASSIUM CHLORIDE
     Dosage: UNK
  14. VITAMIN D [Concomitant]
     Active Substance: CHOLECALCIFEROL
     Dosage: 1000 IU, UNK
  15. CYANOCOBALAMINE [Concomitant]
     Active Substance: CYANOCOBALAMIN
     Dosage: UNK
  16. VITAMIN D3 [Concomitant]
     Active Substance: CHOLECALCIFEROL
     Dosage: UNK
     Dates: start: 2016
  17. CENTRUM SILV [Concomitant]
     Dosage: UNK
  18. PREDNISONE. [Concomitant]
     Active Substance: PREDNISONE
     Dosage: 5 MG, UNK
  19. SIMVASTATIN. [Concomitant]
     Active Substance: SIMVASTATIN
     Dosage: 80 MG, UNK
     Dates: start: 2010
  20. TRIAZOLAM. [Concomitant]
     Active Substance: TRIAZOLAM
     Dosage: 0.25 MG, UNK
  21. SULFAMETHOXAZOL W/TRIMETOPRIM [Concomitant]
     Active Substance: SULFAMETHOXAZOLE\TRIMETHOPRIM
     Dosage: UNK
  22. TRIAZOLAM. [Concomitant]
     Active Substance: TRIAZOLAM
     Dosage: UNK
     Dates: start: 2015
  23. TRIAZOLAM. [Concomitant]
     Active Substance: TRIAZOLAM
     Dosage: 0.25 MG, UNK
     Dates: start: 2015, end: 20170510
  24. TYLENOL EXTR [Concomitant]
     Dosage: 500 MG, UNK
  25. XELJANZ [Suspect]
     Active Substance: TOFACITINIB CITRATE
     Indication: RHEUMATOID ARTHRITIS
     Dosage: 5 MG, 2X/DAY
     Route: 048
     Dates: start: 2015
  26. XELJANZ [Interacting]
     Active Substance: TOFACITINIB CITRATE
     Dosage: 10 MG, DAILY  (2 PILL A DAY)
     Dates: start: 2015
  27. DILTIAZEM. [Concomitant]
     Active Substance: DILTIAZEM
     Dosage: UNK
  28. FUROSEMIDE. [Concomitant]
     Active Substance: FUROSEMIDE
     Dosage: 20 MG, UNK
     Dates: start: 2016

REACTIONS (14)
  - Drug interaction [Not Recovered/Not Resolved]
  - Pneumonia influenzal [Recovered/Resolved]
  - Back pain [Unknown]
  - Anaemia [Recovered/Resolved]
  - Myalgia [Not Recovered/Not Resolved]
  - Asthenia [Not Recovered/Not Resolved]
  - Constipation [Recovered/Resolved]
  - Dyspnoea exertional [Not Recovered/Not Resolved]
  - Fatigue [Not Recovered/Not Resolved]
  - Alopecia [Not Recovered/Not Resolved]
  - Chills [Recovered/Resolved]
  - Arthralgia [Recovering/Resolving]
  - Decreased appetite [Not Recovered/Not Resolved]
  - Drug ineffective [Not Recovered/Not Resolved]
